FAERS Safety Report 24195743 (Version 3)
Quarter: 2025Q2

REPORT INFORMATION
  Report Type: Spontaneous
  Country: US (occurrence: US)
  Receive Date: 20240809
  Receipt Date: 20250424
  Transmission Date: 20250716
  Serious: No
  Sender: PFIZER
  Company Number: US-PFIZER INC-PV202400103323

PATIENT
  Age: 56 Year

DRUGS (1)
  1. PAXLOVID [Suspect]
     Active Substance: NIRMATRELVIR\RITONAVIR
     Indication: COVID-19 treatment
     Route: 060
     Dates: start: 2022

REACTIONS (2)
  - Incorrect route of product administration [Unknown]
  - Nausea [Unknown]

NARRATIVE: CASE EVENT DATE: 20220101
